FAERS Safety Report 6549345-X (Version None)
Quarter: 2010Q1

REPORT INFORMATION
  Report Type: 
  Country: None (occurrence: None)
  Receive Date: 20100125
  Receipt Date: 20100113
  Transmission Date: 20100710
  Serious: No
  Sender: FDA-Public Use
  Company Number: PHHY2009BE42850

PATIENT
  Sex: Female

DRUGS (2)
  1. EXJADE [Suspect]
     Indication: CONGENITAL APLASTIC ANAEMIA
     Route: 048
  2. VITAMINS [Concomitant]

REACTIONS (4)
  - APHTHOUS STOMATITIS [None]
  - MOUTH ULCERATION [None]
  - NEUTROPHIL COUNT DECREASED [None]
  - WHITE BLOOD CELL COUNT DECREASED [None]
